FAERS Safety Report 15106051 (Version 1)
Quarter: 2018Q3

REPORT INFORMATION
  Report Type: Spontaneous
  Country: DE (occurrence: DE)
  Receive Date: 20180704
  Receipt Date: 20180704
  Transmission Date: 20181010
  Serious: Yes (Life-Threatening, Hospitalization)
  Sender: FDA-Public Use
  Company Number: DE-SCIEGEN PHARMACEUTICALS INC-2018SCILIT00419

PATIENT

DRUGS (2)
  1. AMITRIPTYLINE [Suspect]
     Active Substance: AMITRIPTYLINE
     Indication: BORDERLINE PERSONALITY DISORDER
     Dosage: 5.5 G, 85 MG/KG BW
  2. QUETIAPINE. [Suspect]
     Active Substance: QUETIAPINE
     Indication: BORDERLINE PERSONALITY DISORDER
     Dosage: 10 G, 150 MG/KG BW
     Route: 065

REACTIONS (8)
  - Toxicity to various agents [Recovering/Resolving]
  - Coma [Recovering/Resolving]
  - Anticholinergic syndrome [Recovering/Resolving]
  - Suicide attempt [Not Recovered/Not Resolved]
  - Ventricular tachycardia [Recovering/Resolving]
  - Bezoar [Unknown]
  - Cardiogenic shock [Recovering/Resolving]
  - Myoclonus [Recovering/Resolving]
